FAERS Safety Report 8539201-X (Version None)
Quarter: 2012Q3

REPORT INFORMATION
  Report Type: 
  Country: None (occurrence: None)
  Receive Date: 20120726
  Receipt Date: 20120713
  Transmission Date: 20120928
  Serious: Yes (Death)
  Sender: FDA-Public Use
  Company Number: DE-FRI-1000037256

PATIENT
  Age: 29 Year
  Sex: Female

DRUGS (2)
  1. ESCITALOPRAM [Suspect]
     Dosage: SUSPECTED OVERDOSE (120 MG)
     Route: 048
     Dates: start: 20120701, end: 20120701
  2. ESCITALOPRAM [Suspect]
     Dosage: 20 MG
     Route: 048

REACTIONS (2)
  - OVERDOSE [None]
  - DEATH [None]
